FAERS Safety Report 9744935 (Version 3)
Quarter: 2014Q1

REPORT INFORMATION
  Report Type: Spontaneous
  Country: US (occurrence: US)
  Receive Date: 20131211
  Receipt Date: 20140114
  Transmission Date: 20141002
  Serious: Yes (Hospitalization, Other)
  Sender: FDA-Public Use
  Company Number: US-BIOGENIDEC-2013BI116698

PATIENT
  Sex: Female

DRUGS (1)
  1. TYSABRI [Suspect]
     Indication: MULTIPLE SCLEROSIS
     Route: 042
     Dates: start: 20131030

REACTIONS (29)
  - Ovarian cancer [Not Recovered/Not Resolved]
  - Immunodeficiency [Not Recovered/Not Resolved]
  - Pneumonia [Unknown]
  - Gastritis [Unknown]
  - Breast cancer [Unknown]
  - Oesophageal ulcer [Unknown]
  - Pleural effusion [Unknown]
  - Haematemesis [Unknown]
  - Failure to thrive [Unknown]
  - Hyponatraemia [Unknown]
  - Hypovolaemia [Unknown]
  - Oesophagitis [Unknown]
  - Deep vein thrombosis [Unknown]
  - Rectal ulcer [Unknown]
  - Pulmonary embolism [Unknown]
  - Type 2 diabetes mellitus [Unknown]
  - Hypoalbuminaemia [Unknown]
  - Constipation [Unknown]
  - Pancreatic carcinoma stage IV [Not Recovered/Not Resolved]
  - Anaemia [Unknown]
  - Tachycardia [Unknown]
  - Malignant ascites [Unknown]
  - Generalised oedema [Unknown]
  - Dehydration [Unknown]
  - Transfusion-related acute lung injury [Unknown]
  - Renal failure acute [Recovered/Resolved]
  - Pancytopenia [Unknown]
  - Gastrointestinal haemorrhage [Not Recovered/Not Resolved]
  - Sepsis [Not Recovered/Not Resolved]
